FAERS Safety Report 16754133 (Version 4)
Quarter: 2019Q4

REPORT INFORMATION
  Report Type: Spontaneous
  Country: US (occurrence: US)
  Receive Date: 20190829
  Receipt Date: 20191220
  Transmission Date: 20200122
  Serious: Yes (Death, Hospitalization)
  Sender: FDA-Public Use
  Company Number: US-PFIZER INC-2019368516

PATIENT
  Sex: Female

DRUGS (2)
  1. ADVIL [Suspect]
     Active Substance: IBUPROFEN
     Indication: LIGAMENT SPRAIN
  2. ADVIL [Suspect]
     Active Substance: IBUPROFEN
     Indication: INFLAMMATION
     Dosage: 40 DF, DAILY (8 AT AWAKEN, 8 AT BREAKFAST, 8 WHEN LEAVING, 8 WHEN RESTAURANT OPENED AND 8 AT PM)

REACTIONS (4)
  - Feeding disorder [Unknown]
  - Dyspepsia [Unknown]
  - Neoplasm malignant [Fatal]
  - Overdose [Unknown]
